FAERS Safety Report 21411072 (Version 2)
Quarter: 2022Q4

REPORT INFORMATION
  Report Type: Report from Study
  Country: AR (occurrence: AR)
  Receive Date: 20221005
  Receipt Date: 20221119
  Transmission Date: 20230113
  Serious: No
  Sender: FDA-Public Use
  Company Number: AR-NOVARTISPH-NVSC2022AR224624

PATIENT
  Sex: Female

DRUGS (2)
  1. DIOVAN [Suspect]
     Active Substance: VALSARTAN
     Indication: Hypertension
     Dosage: 1 DOSAGE FORM, (320 MG), QD, (STARTED SEVERAL  YEARS AGO)
     Route: 065
     Dates: end: 202202
  2. DIOVAN [Suspect]
     Active Substance: VALSARTAN
     Dosage: 80 MG, QD
     Route: 065
     Dates: start: 202202

REACTIONS (2)
  - Blood pressure abnormal [Unknown]
  - Product availability issue [Unknown]
